FAERS Safety Report 22192486 (Version 1)
Quarter: 2023Q2

REPORT INFORMATION
  Report Type: Spontaneous
  Country: US (occurrence: US)
  Receive Date: 20230410
  Receipt Date: 20230410
  Transmission Date: 20230722
  Serious: Yes (Other)
  Sender: FDA-Public Use
  Company Number: US-PFIZER INC-202300145958

PATIENT
  Age: 59 Year
  Sex: Female
  Weight: 74.84 kg

DRUGS (3)
  1. VARENICLINE TARTRATE [Suspect]
     Active Substance: VARENICLINE TARTRATE
     Indication: Ex-tobacco user
     Dosage: 1 MG, 2X/DAY
  2. VARENICLINE TARTRATE [Suspect]
     Active Substance: VARENICLINE TARTRATE
     Dosage: 1 MG, 1X/DAY
  3. VARENICLINE TARTRATE [Suspect]
     Active Substance: VARENICLINE TARTRATE
     Dosage: UNK
     Dates: start: 2021

REACTIONS (11)
  - T-cell lymphoma [Unknown]
  - Intestinal metastasis [Unknown]
  - Impaired gastric emptying [Unknown]
  - Retching [Unknown]
  - Conjunctival haemorrhage [Unknown]
  - Dementia [Unknown]
  - Illness [Unknown]
  - Vomiting [Unknown]
  - Weight decreased [Unknown]
  - Hunger [Unknown]
  - Gastrointestinal sounds abnormal [Unknown]
